FAERS Safety Report 16882194 (Version 1)
Quarter: 2019Q4

REPORT INFORMATION
  Report Type: Spontaneous
  Country: US (occurrence: US)
  Receive Date: 20191003
  Receipt Date: 20191003
  Transmission Date: 20200122
  Serious: Yes (Death)
  Sender: FDA-Public Use
  Company Number: US-ELI_LILLY_AND_COMPANY-US201910001277

PATIENT
  Sex: Male

DRUGS (11)
  1. NAPROXEN. [Concomitant]
     Active Substance: NAPROXEN
     Indication: PAIN
     Dosage: UNK
     Dates: start: 20070809
  2. LOTREL [AMLODIPINE BESILATE;BENAZEPRIL HYDROC [Concomitant]
     Indication: HYPERTENSION
     Dosage: UNK
     Dates: start: 20070102
  3. LOTREL [AMLODIPINE BESILATE;BENAZEPRIL HYDROC [Concomitant]
     Dosage: UNK
     Dates: start: 20071012
  4. LEVITRA [Concomitant]
     Active Substance: VARDENAFIL HYDROCHLORIDE
     Indication: ERECTILE DYSFUNCTION
  5. OXYCODONE [Concomitant]
     Active Substance: OXYCODONE
     Indication: PAIN
  6. CIALIS [Suspect]
     Active Substance: TADALAFIL
     Indication: ERECTILE DYSFUNCTION
     Dosage: 20 MG, UNKNOWN
     Route: 065
     Dates: start: 20080513, end: 20091121
  7. CHLORHEXIDINE [Concomitant]
     Active Substance: CHLORHEXIDINE
     Indication: SEPSIS
     Dosage: UNK
     Dates: start: 20070828
  8. METFORMIN [Concomitant]
     Active Substance: METFORMIN HYDROCHLORIDE
     Indication: DIABETES MELLITUS
     Dosage: UNK
     Dates: start: 20071012
  9. CYCLOBENZAPRINE. [Concomitant]
     Active Substance: CYCLOBENZAPRINE
     Indication: MUSCLE RELAXANT THERAPY
     Dosage: UNK
     Dates: start: 20070809
  10. SSD [Concomitant]
     Active Substance: SILVER SULFADIAZINE
     Indication: INFECTION
     Dosage: UNK
     Dates: start: 20090715
  11. VIAGRA [Suspect]
     Active Substance: SILDENAFIL CITRATE
     Indication: ERECTILE DYSFUNCTION
     Dosage: 100 MG, UNKNOWN
     Route: 065
     Dates: start: 20070511, end: 20070610

REACTIONS (1)
  - Malignant melanoma stage II [Fatal]

NARRATIVE: CASE EVENT DATE: 20090618
